FAERS Safety Report 5104864-8 (Version None)
Quarter: 2006Q3

REPORT INFORMATION
  Report Type: 
  Country: None (occurrence: None)
  Receive Date: 20060914
  Receipt Date: 20060828
  Transmission Date: 20061208
  Serious: Yes (Hospitalization)
  Sender: FDA-Public Use
  Company Number: JP-JPN-A200603393

PATIENT
  Age: 74 Year
  Sex: Male
  Weight: 67 kg

DRUGS (13)
  1. VALTREX [Suspect]
     Indication: HERPES ZOSTER
     Dosage: 500MG THREE TIMES PER DAY
     Route: 048
     Dates: start: 20060824, end: 20060824
  2. ZYLORIC [Concomitant]
     Dosage: 100MG PER DAY
     Route: 048
  3. BAYASPIRIN [Concomitant]
     Dosage: 1TAB PER DAY
     Route: 048
  4. DIOVAN [Concomitant]
     Dosage: 80MG PER DAY
     Route: 048
  5. NORVASC [Concomitant]
     Dosage: 5MG PER DAY
     Route: 048
  6. SELOKEN [Concomitant]
     Dosage: 20MG TWICE PER DAY
     Route: 048
  7. ZANTAC [Concomitant]
     Dosage: 150MG TWICE PER DAY
     Route: 048
  8. MEVALOTIN [Concomitant]
     Dosage: 10MG PER DAY
     Route: 048
  9. SERMION [Concomitant]
     Dosage: 5MG THREE TIMES PER DAY
     Route: 048
  10. SIGMART [Concomitant]
     Dosage: 5MG THREE TIMES PER DAY
     Route: 048
  11. BASEN [Concomitant]
     Dosage: .2MG THREE TIMES PER DAY
     Route: 048
  12. LOXOPROFEN SODIUM [Concomitant]
     Dosage: 1TAB THREE TIMES PER DAY
     Route: 048
     Dates: start: 20060824, end: 20060824
  13. MUCOSTA [Concomitant]
     Dosage: 1TAB THREE TIMES PER DAY
     Route: 048
     Dates: start: 20060824, end: 20060824

REACTIONS (7)
  - BLOOD CREATININE INCREASED [None]
  - HAEMATURIA [None]
  - MALAISE [None]
  - OLIGURIA [None]
  - PROTEIN URINE PRESENT [None]
  - RENAL FAILURE ACUTE [None]
  - RENAL IMPAIRMENT [None]
